FAERS Safety Report 23033460 (Version 1)
Quarter: 2023Q4

REPORT INFORMATION
  Report Type: Spontaneous
  Country: GB (occurrence: GB)
  Receive Date: 20231005
  Receipt Date: 20231005
  Transmission Date: 20240110
  Serious: Yes (Other)
  Sender: FDA-Public Use
  Company Number: None

PATIENT
  Age: 65 Year
  Sex: Female
  Weight: 84 kg

DRUGS (9)
  1. ESTRING [Suspect]
     Active Substance: ESTRADIOL
     Dosage: ESTRING 7.5MICROGRAMS/24HOURS VAGINAL DELIVERY SYSTEM (PFIZER LTD)
  2. COCODAMOL [Concomitant]
     Active Substance: ACETAMINOPHEN\CODEINE PHOSPHATE
     Dosage: TAKE ONE OR TWO, 4X/DAY
     Dates: start: 20230223
  3. ESOMEPRAZOLE [Concomitant]
     Active Substance: ESOMEPRAZOLE
     Dates: start: 20211025
  4. ESTRADERM [Concomitant]
     Active Substance: ESTRADIOL
     Dosage: APPLY
     Dates: start: 20220303
  5. ESTRADIOL [Concomitant]
     Active Substance: ESTRADIOL
     Dosage: INSERT
     Dates: start: 20220516
  6. LISINOPRIL [Concomitant]
     Active Substance: LISINOPRIL
     Dates: start: 20220303
  7. NORTRIPTYLINE [Concomitant]
     Active Substance: NORTRIPTYLINE
     Dosage: TAKE ONE 2-3HOURS BEFORE BED
     Dates: start: 20210811
  8. SIMVASTATIN [Concomitant]
     Active Substance: SIMVASTATIN
     Dosage: AT NIGHT
     Dates: start: 20211025
  9. SODIUM ALGINATE [Concomitant]
     Active Substance: SODIUM ALGINATE
     Dates: start: 20211025

REACTIONS (8)
  - Mood altered [Recovered/Resolved]
  - Suicidal ideation [Unknown]
  - Irritability [Unknown]
  - Anger [Unknown]
  - Violence-related symptom [Unknown]
  - Affect lability [Unknown]
  - Breast pain [Unknown]
  - Condition aggravated [Unknown]
